FAERS Safety Report 7452032-7 (Version None)
Quarter: 2011Q2

REPORT INFORMATION
  Report Type: 
  Country: None (occurrence: None)
  Receive Date: 20110502
  Receipt Date: 20110427
  Transmission Date: 20111010
  Serious: Yes (Death, Hospitalization)
  Sender: FDA-Public Use
  Company Number: US-ACTELION-A-NJ2011-47032

PATIENT

DRUGS (6)
  1. SILDENAFIL [Concomitant]
  2. VELETRI [Suspect]
     Dosage: UNK
     Route: 041
     Dates: start: 20110201
  3. VELETRI [Suspect]
     Indication: PULMONARY ARTERIAL HYPERTENSION
     Dosage: 16 NG/KG, PER MIN
     Route: 041
     Dates: start: 20110325
  4. AMBRISENTAN [Concomitant]
  5. VELETRI [Suspect]
     Dosage: 21 NG/KG, PER MIN
     Route: 041
     Dates: start: 20110306
  6. COUMADIN [Concomitant]

REACTIONS (7)
  - PALPITATIONS [None]
  - DEATH [None]
  - CARDIAC DISORDER [None]
  - OEDEMA [None]
  - DIARRHOEA [None]
  - RENAL DISORDER [None]
  - NAUSEA [None]
